FAERS Safety Report 8315413-5 (Version None)
Quarter: 2012Q2

REPORT INFORMATION
  Report Type: 
  Country: None (occurrence: None)
  Receive Date: 20120426
  Receipt Date: 20120418
  Transmission Date: 20120825
  Serious: Yes (Other)
  Sender: FDA-Public Use
  Company Number: US-PERRIGO-12US003411

PATIENT
  Sex: Male

DRUGS (2)
  1. ANTIHYPERTENSIVES [Concomitant]
     Indication: HYPERTENSION
     Dosage: UNK
     Route: 048
  2. NICOTINE [Suspect]
     Indication: SMOKING CESSATION THERAPY
     Dosage: 1/2 LOZENGE, UNK
     Route: 002
     Dates: start: 20110801

REACTIONS (7)
  - CARDIAC VALVE DISEASE [None]
  - WRONG TECHNIQUE IN DRUG USAGE PROCESS [None]
  - NICOTINE DEPENDENCE [None]
  - OEDEMA PERIPHERAL [None]
  - CARDIOMEGALY [None]
  - HYPOAESTHESIA [None]
  - INCORRECT DRUG ADMINISTRATION DURATION [None]
